FAERS Safety Report 15860798 (Version 1)
Quarter: 2019Q1

REPORT INFORMATION
  Report Type: Spontaneous
  Country: US (occurrence: US)
  Receive Date: 20190124
  Receipt Date: 20190124
  Transmission Date: 20190417
  Serious: No
  Sender: FDA-Public Use
  Company Number: US-DRREDDYS-USA/USA/18/0097927

PATIENT
  Age: 26 Year
  Sex: Male
  Weight: 97.7 kg

DRUGS (1)
  1. RANITIDINE. [Suspect]
     Active Substance: RANITIDINE
     Indication: DYSPEPSIA
     Route: 065

REACTIONS (2)
  - Amphetamines positive [Unknown]
  - Product complaint [Unknown]

NARRATIVE: CASE EVENT DATE: 20180406
